FAERS Safety Report 8985438 (Version 2)
Quarter: 2013Q1

REPORT INFORMATION
  Report Type: Spontaneous
  Country: US (occurrence: US)
  Receive Date: 20121226
  Receipt Date: 20130117
  Transmission Date: 20140127
  Serious: Yes (Hospitalization)
  Sender: FDA-Public Use
  Company Number: US-JNJFOC-20121209657

PATIENT
  Sex: Male

DRUGS (1)
  1. NUCYNTA [Suspect]
     Indication: ANALGESIC THERAPY
     Dosage: 50-100 MG TABLET CRUSHED AND ADMINISTERED VIA PEG TUBE
     Route: 050

REACTIONS (2)
  - Hospitalisation [Not Recovered/Not Resolved]
  - Incorrect route of drug administration [Unknown]
